FAERS Safety Report 9690912 (Version 2)
Quarter: 2013Q4

REPORT INFORMATION
  Report Type: Report from Study
  Country: CA (occurrence: CA)
  Receive Date: 20131115
  Receipt Date: 20131224
  Transmission Date: 20140711
  Serious: Yes (Death, Other)
  Sender: FDA-Public Use
  Company Number: CA-SA-2013SA112482

PATIENT
  Age: 10 Year
  Sex: Female
  Weight: 39 kg

DRUGS (25)
  1. ALEMTUZUMAB [Suspect]
     Indication: HISTIOCYTOSIS HAEMATOPHAGIC
     Dosage: FOR 5 DAYS
     Route: 065
     Dates: start: 20131022, end: 20131026
  2. HYDROMORPHONE [Concomitant]
     Indication: PAIN
     Route: 065
     Dates: start: 20131001, end: 20131031
  3. HYDROMORPHONE [Concomitant]
     Indication: SEDATION
     Route: 065
     Dates: start: 20131001, end: 20131031
  4. ACYCLOVIR [Concomitant]
     Indication: ANTIVIRAL TREATMENT
     Route: 042
     Dates: start: 20130918, end: 20131031
  5. ACYCLOVIR [Concomitant]
     Indication: ANTIFUNGAL TREATMENT
     Route: 042
     Dates: start: 20130918, end: 20131031
  6. ACYCLOVIR [Concomitant]
     Indication: ANTIFUNGAL PROPHYLAXIS
     Route: 042
     Dates: start: 20130918, end: 20131031
  7. ACYCLOVIR [Concomitant]
     Indication: ANTIBIOTIC PROPHYLAXIS
     Route: 042
     Dates: start: 20130918, end: 20131031
  8. AMBISOME [Concomitant]
     Indication: ANTIVIRAL TREATMENT
     Route: 042
     Dates: start: 20130926, end: 20131031
  9. AMBISOME [Concomitant]
     Indication: ANTIFUNGAL TREATMENT
     Route: 042
     Dates: start: 20130926, end: 20131031
  10. AMBISOME [Concomitant]
     Indication: ANTIFUNGAL PROPHYLAXIS
     Route: 042
     Dates: start: 20130926, end: 20131031
  11. AMBISOME [Concomitant]
     Indication: ANTIBIOTIC PROPHYLAXIS
     Route: 042
     Dates: start: 20130926, end: 20131031
  12. CO-TRIMOXAZOLE [Concomitant]
     Indication: ANTIVIRAL TREATMENT
     Route: 042
     Dates: start: 20131023, end: 20131031
  13. CO-TRIMOXAZOLE [Concomitant]
     Indication: ANTIFUNGAL TREATMENT
     Route: 042
     Dates: start: 20131023, end: 20131031
  14. CO-TRIMOXAZOLE [Concomitant]
     Indication: ANTIFUNGAL PROPHYLAXIS
     Route: 042
     Dates: start: 20131023, end: 20131031
  15. CO-TRIMOXAZOLE [Concomitant]
     Indication: ANTIBIOTIC PROPHYLAXIS
     Route: 042
     Dates: start: 20131023, end: 20131031
  16. MEROPENEM [Concomitant]
     Indication: ANTIVIRAL TREATMENT
     Route: 042
     Dates: start: 20130921, end: 20131031
  17. MEROPENEM [Concomitant]
     Indication: ANTIFUNGAL TREATMENT
     Route: 042
     Dates: start: 20130921, end: 20131031
  18. MEROPENEM [Concomitant]
     Indication: ANTIFUNGAL PROPHYLAXIS
     Route: 042
     Dates: start: 20130921, end: 20131031
  19. MEROPENEM [Concomitant]
     Indication: ANTIBIOTIC PROPHYLAXIS
     Route: 042
     Dates: start: 20130921, end: 20131031
  20. CYCLOSPORINE [Concomitant]
     Indication: HISTIOCYTOSIS HAEMATOPHAGIC
     Route: 042
     Dates: start: 20130919, end: 20131031
  21. DEXAMETHASONE [Concomitant]
     Indication: HISTIOCYTOSIS HAEMATOPHAGIC
     Route: 042
     Dates: start: 20131007, end: 20131031
  22. ETOPOSIDE [Concomitant]
     Indication: HISTIOCYTOSIS HAEMATOPHAGIC
     Route: 065
     Dates: start: 20131006
  23. ETOPOSIDE [Concomitant]
     Indication: HISTIOCYTOSIS HAEMATOPHAGIC
     Route: 065
     Dates: start: 20131011
  24. ETOPOSIDE [Concomitant]
     Indication: HISTIOCYTOSIS HAEMATOPHAGIC
     Route: 065
     Dates: start: 20131013, end: 20131031
  25. NOREPINEPHRINE [Concomitant]
     Indication: VASOPRESSIVE THERAPY
     Dosage: 0.08 MCG/KG/MIN
     Route: 065
     Dates: start: 20131027, end: 20131031

REACTIONS (8)
  - Multi-organ failure [Fatal]
  - Graft loss [Unknown]
  - Renal failure [Unknown]
  - Gastrointestinal haemorrhage [Unknown]
  - Sepsis [Unknown]
  - Hypotension [Unknown]
  - Bradycardia [Unknown]
  - Thrombocytopenia [Unknown]
